FAERS Safety Report 11001100 (Version 1)
Quarter: 2015Q2

REPORT INFORMATION
  Report Type: Spontaneous
  Country: US (occurrence: US)
  Receive Date: 20150408
  Receipt Date: 20150408
  Transmission Date: 20150821
  Serious: No
  Sender: FDA-Public Use
  Company Number: US-SA-2015SA012311

PATIENT
  Age: 77 Year
  Sex: Male

DRUGS (4)
  1. DELSYM [Concomitant]
     Active Substance: DEXTROMETHORPHAN
     Indication: NASOPHARYNGITIS
     Route: 065
  2. SUDAFED [Concomitant]
     Active Substance: PSEUDOEPHEDRINE HYDROCHLORIDE
     Indication: NASOPHARYNGITIS
     Route: 065
  3. ALLEGRA [Suspect]
     Active Substance: FEXOFENADINE HYDROCHLORIDE
     Indication: NASOPHARYNGITIS
     Dosage: PRODUCT START DATE: SATURDAY
     Route: 065
  4. ALKA-SELTZER PLUS COLD [Concomitant]
     Active Substance: ACETAMINOPHEN\CHLORPHENIRAMINE MALEATE\PHENYLEPHRINE HYDROCHLORIDE
     Indication: NASOPHARYNGITIS
     Route: 065

REACTIONS (2)
  - Decreased appetite [Recovering/Resolving]
  - Dizziness [Recovering/Resolving]
